FAERS Safety Report 4684940-4 (Version None)
Quarter: 2005Q2

REPORT INFORMATION
  Report Type: 
  Country: None (occurrence: None)
  Receive Date: 20050603
  Receipt Date: 20050513
  Transmission Date: 20051028
  Serious: Yes (Hospitalization)
  Sender: FDA-Public Use
  Company Number: 31366

PATIENT
  Age: 69 Year
  Sex: Male

DRUGS (1)
  1. BETOPTIC [Suspect]
     Indication: OPEN ANGLE GLAUCOMA
     Dosage: OPHT
     Route: 047
     Dates: start: 20050210, end: 20050320

REACTIONS (4)
  - INTRAOCULAR PRESSURE INCREASED [None]
  - MYDRIASIS [None]
  - PHARMACEUTICAL PRODUCT COMPLAINT [None]
  - SURGERY [None]
